FAERS Safety Report 11170777 (Version 1)
Quarter: 2015Q2

REPORT INFORMATION
  Report Type: Spontaneous
  Country: US (occurrence: None)
  Receive Date: 20150515
  Receipt Date: 20150515
  Transmission Date: 20150821
  Serious: Yes (Hospitalization)
  Sender: FDA-Public Use
  Company Number: 2014016654

PATIENT
  Age: 61 Year
  Sex: Female
  Weight: 85.3 kg

DRUGS (3)
  1. CIMZIA [Suspect]
     Active Substance: CERTOLIZUMAB PEGOL
     Indication: CROHN^S DISEASE
     Dosage: 400 MG, EV 4 WEEKS, SUBCUTANEOUS
     Route: 058
     Dates: start: 20101001, end: 20141006
  2. METHOTREXATE [Concomitant]
     Active Substance: METHOTREXATE
  3. ENTOCORT EC (BUDESONIDE) [Concomitant]

REACTIONS (2)
  - Crohn^s disease [None]
  - Drug ineffective [None]

NARRATIVE: CASE EVENT DATE: 201409
